FAERS Safety Report 9730425 (Version 1)
Quarter: 2013Q4

REPORT INFORMATION
  Report Type: Spontaneous
  Country: CH (occurrence: CH)
  Receive Date: 20131202
  Receipt Date: 20131202
  Transmission Date: 20140711
  Serious: Yes (Life-Threatening, Hospitalization)
  Sender: FDA-Public Use
  Company Number: CH-TEVA-445396ISR

PATIENT
  Age: 63 Year
  Sex: Male
  Weight: 55.4 kg

DRUGS (5)
  1. MIRTAZAPINE [Suspect]
     Dosage: 15 MILLIGRAM DAILY;
     Dates: start: 20121212, end: 20121216
  2. MIRTAZAPINE [Suspect]
     Dosage: 30 MILLIGRAM DAILY;
     Route: 065
     Dates: start: 20121217
  3. ZOLDORM [Suspect]
     Dosage: 10 MG AS RESERVE MEDICATION
     Route: 065
  4. JARSIN [Suspect]
     Dosage: 450 MILLIGRAM DAILY;
     Dates: end: 20121212
  5. TRIOFAN ALLERGIE NASENSPRAY [Concomitant]
     Dosage: 2 PUFFS/DAY IN RESERVE

REACTIONS (7)
  - Fall [Recovered/Resolved with Sequelae]
  - Spinal fracture [Not Recovered/Not Resolved]
  - Malaise [Unknown]
  - Dyspnoea [Unknown]
  - Delusion [Unknown]
  - Blood pressure decreased [Unknown]
  - Dizziness [Unknown]
